FAERS Safety Report 21043650 (Version 2)
Quarter: 2022Q3

REPORT INFORMATION
  Report Type: Spontaneous
  Country: US (occurrence: None)
  Receive Date: 20220705
  Receipt Date: 20220717
  Transmission Date: 20221027
  Serious: No
  Sender: FDA-Public Use
  Company Number: US-Merck Healthcare KGaA-9332723

PATIENT
  Age: 40 Year
  Sex: Female

DRUGS (1)
  1. MAVENCLAD [Suspect]
     Active Substance: CLADRIBINE
     Indication: Multiple sclerosis

REACTIONS (8)
  - Muscular weakness [Unknown]
  - Muscle spasms [Unknown]
  - Dizziness [Unknown]
  - Vertigo [Unknown]
  - Balance disorder [Unknown]
  - Myalgia [Unknown]
  - Anxiety [Unknown]
  - Dyskinesia [Unknown]
